FAERS Safety Report 12276974 (Version 1)
Quarter: 2016Q2

REPORT INFORMATION
  Report Type: Spontaneous
  Country: JP (occurrence: JP)
  Receive Date: 20160418
  Receipt Date: 20160418
  Transmission Date: 20160815
  Serious: Yes (Other)
  Sender: FDA-Public Use
  Company Number: JP-ELI_LILLY_AND_COMPANY-JP201603010919

PATIENT
  Age: 61 Year
  Sex: Female

DRUGS (2)
  1. ERBITUX [Suspect]
     Active Substance: CETUXIMAB
     Indication: TONGUE CANCER RECURRENT
     Dosage: UNK UNK, UNKNOWN
     Route: 042
     Dates: start: 201603
  2. TAXOL [Suspect]
     Active Substance: PACLITAXEL
     Indication: TONGUE CANCER RECURRENT
     Dosage: UNK UNK, UNKNOWN
     Route: 042
     Dates: start: 201603

REACTIONS (2)
  - Neutrophil count decreased [Recovered/Resolved]
  - White blood cell count decreased [Recovered/Resolved]

NARRATIVE: CASE EVENT DATE: 201603
